FAERS Safety Report 18510013 (Version 1)
Quarter: 2020Q4

REPORT INFORMATION
  Report Type: Spontaneous
  Country: US (occurrence: US)
  Receive Date: 20201117
  Receipt Date: 20201117
  Transmission Date: 20210114
  Serious: Yes (Other)
  Sender: FDA-Public Use
  Company Number: US-009507513-2011USA008091

PATIENT
  Sex: Male

DRUGS (5)
  1. PRINIVIL [Suspect]
     Active Substance: LISINOPRIL
     Route: 048
  2. LOPID [Suspect]
     Active Substance: GEMFIBROZIL
     Indication: BLOOD TRIGLYCERIDES
     Dosage: UNK
  3. LOPID [Suspect]
     Active Substance: GEMFIBROZIL
     Indication: BLOOD CHOLESTEROL
     Dosage: UNK
  4. FLEXERIL [Suspect]
     Active Substance: CYCLOBENZAPRINE HYDROCHLORIDE
  5. ASPIRIN. [Suspect]
     Active Substance: ASPIRIN

REACTIONS (3)
  - Mouth swelling [Not Recovered/Not Resolved]
  - Angioedema [Not Recovered/Not Resolved]
  - Swollen tongue [Not Recovered/Not Resolved]
